FAERS Safety Report 16917509 (Version 7)
Quarter: 2020Q2

REPORT INFORMATION
  Report Type: Spontaneous
  Country: DE (occurrence: DE)
  Receive Date: 20191015
  Receipt Date: 20200512
  Transmission Date: 20200713
  Serious: Yes (Death, Other)
  Sender: FDA-Public Use
  Company Number: DE-009507513-1910DEU009458

PATIENT
  Age: 60 Year
  Sex: Male

DRUGS (5)
  1. CISPLATIN. [Suspect]
     Active Substance: CISPLATIN
     Indication: METASTATIC NEOPLASM
     Dosage: 4 CYCLES, 1ST LINE THERAPY
     Dates: start: 20181017, end: 20181220
  2. PEMETREXED DISODIUM [Suspect]
     Active Substance: PEMETREXED DISODIUM
     Indication: METASTATIC NEOPLASM
     Dosage: 4 CYCLES, 1ST LINE THERAPY
     Dates: start: 20181017, end: 20181220
  3. NINTEDANIB [Suspect]
     Active Substance: NINTEDANIB
     Indication: METASTATIC NEOPLASM
     Dosage: UNK, 2 CYCLES
     Dates: start: 20190131, end: 20190408
  4. DOCETAXEL. [Suspect]
     Active Substance: DOCETAXEL
     Indication: METASTATIC NEOPLASM
     Dosage: UNK, 2 CYCLES
     Dates: start: 20190131, end: 20190404
  5. PEMBROLIZUMAB. [Suspect]
     Active Substance: PEMBROLIZUMAB
     Indication: METASTATIC NEOPLASM
     Dosage: 4 CYCLES, 1ST LINE THERAPY
     Dates: start: 20181017, end: 20181220

REACTIONS (2)
  - Malignant neoplasm progression [Unknown]
  - Death [Fatal]

NARRATIVE: CASE EVENT DATE: 20190116
